FAERS Safety Report 5865752-2 (Version None)
Quarter: 2008Q3

REPORT INFORMATION
  Report Type: 
  Country: None (occurrence: None)
  Receive Date: 20080829
  Receipt Date: 20080822
  Transmission Date: 20090109
  Serious: Yes (Hospitalization)
  Sender: FDA-Public Use
  Company Number: PHHY2008GB19266

PATIENT
  Age: 81 Year
  Sex: Male

DRUGS (5)
  1. EXELON [Suspect]
     Indication: DEMENTIA
     Dosage: 9.5 MG PATCH, UNK
     Route: 062
     Dates: start: 20080727, end: 20080728
  2. EXELON [Suspect]
     Indication: PARKINSON'S DISEASE
  3. MADOPAR [Concomitant]
     Route: 048
  4. MIRTAZAPINE [Concomitant]
     Route: 048
  5. STALEVO 100 [Concomitant]
     Route: 048

REACTIONS (2)
  - HYPERTONIA [None]
  - MOBILITY DECREASED [None]
